FAERS Safety Report 9122622 (Version 2)
Quarter: 2013Q2

REPORT INFORMATION
  Report Type: Spontaneous
  Country: US (occurrence: None)
  Receive Date: 20130131
  Receipt Date: 20130430
  Transmission Date: 20140414
  Serious: Yes (Other)
  Sender: FDA-Public Use
  Company Number: JPI-P-029318

PATIENT
  Age: 59 Year
  Sex: Female

DRUGS (8)
  1. XYREM [Suspect]
     Indication: HYPERSOMNIA
     Dosage: (4.5 GM, 3 IN 1 D)
     Route: 048
     Dates: start: 201001
  2. CARISOPRODOL [Concomitant]
  3. PREGABALIN [Concomitant]
  4. TEMAZEPAM [Concomitant]
  5. ALPRAZOLAM [Concomitant]
  6. OXYCODONE AND ASPIRIN [Concomitant]
  7. PROCHLORPERAZINE [Concomitant]
  8. TOPIRAMATE [Concomitant]

REACTIONS (1)
  - Anal cancer [None]
